FAERS Safety Report 9007036 (Version 1)
Quarter: 2013Q1

REPORT INFORMATION
  Report Type: Spontaneous
  Country: US (occurrence: US)
  Receive Date: 20130110
  Receipt Date: 20130110
  Transmission Date: 20140127
  Serious: Yes (Death)
  Sender: FDA-Public Use
  Company Number: US-PFIZER INC-2013007145

PATIENT
  Age: 47 Year
  Sex: Female

DRUGS (5)
  1. AMLODIPINE BESILATE [Suspect]
  2. FUROSEMIDE [Suspect]
  3. ALPRAZOLAM [Suspect]
  4. HYDROXYZINE PAMOATE [Suspect]
  5. SIMVASTATIN [Suspect]

REACTIONS (1)
  - Completed suicide [Fatal]
